FAERS Safety Report 8773791 (Version 1)
Quarter: 2012Q4

REPORT INFORMATION
  Report Type: 
  Country: GB (occurrence: GB)
  Receive Date: 20120907
  Receipt Date: 20120907
  Transmission Date: 20130627
  Serious: Yes (Life-Threatening, Hospitalization)
  Sender: FDA-Public Use
  Company Number: GB-SP-2012-08005

PATIENT
  Age: 53 Year
  Sex: Male

DRUGS (2)
  1. IMMUCYST [Suspect]
     Indication: BLADDER CANCER
     Route: 048
     Dates: end: 20120530
  2. ACETYLSALIC ACID [Concomitant]

REACTIONS (11)
  - Bovine tuberculosis [Unknown]
  - Mycobacterium tuberculosis complex test positive [Unknown]
  - Cough [Unknown]
  - Pyrexia [Unknown]
  - Malaise [Unknown]
  - Weight decreased [Unknown]
  - Night sweats [Unknown]
  - Chills [Unknown]
  - Chills [Unknown]
  - Hyperhidrosis [Unknown]
  - Fatigue [Unknown]
